FAERS Safety Report 10670037 (Version 3)
Quarter: 2015Q1

REPORT INFORMATION
  Report Type: Spontaneous
  Country: US (occurrence: US)
  Receive Date: 20141223
  Receipt Date: 20150320
  Transmission Date: 20150720
  Serious: No
  Sender: FDA-Public Use
  Company Number: US-ASTRAZENECA-2014SE95941

PATIENT
  Age: 26458 Day
  Sex: Male
  Weight: 79.4 kg

DRUGS (6)
  1. FLOMAX [Concomitant]
     Active Substance: TAMSULOSIN HYDROCHLORIDE
     Indication: MICTURITION DISORDER
     Route: 048
  2. SYMBICORT [Suspect]
     Active Substance: BUDESONIDE\FORMOTEROL FUMARATE DIHYDRATE
     Indication: PULMONARY CONGESTION
     Dosage: PRESCRIBED 80-4.5,  TWO PUFFS BID,  BUT THE PATIENT ONLY TAKES IT EVERY MORNING
     Route: 055
     Dates: start: 20141118, end: 20141210
  3. XANAX [Concomitant]
     Active Substance: ALPRAZOLAM
     Indication: ANXIETY
     Route: 048
     Dates: start: 2007
  4. AMBIEN [Concomitant]
     Active Substance: ZOLPIDEM TARTRATE
     Indication: SLEEP DISORDER
     Route: 048
     Dates: start: 2009
  5. PERCOCET [Concomitant]
     Active Substance: ACETAMINOPHEN\OXYCODONE HYDROCHLORIDE
     Indication: PAIN
     Route: 048
  6. SYMBICORT [Suspect]
     Active Substance: BUDESONIDE\FORMOTEROL FUMARATE DIHYDRATE
     Indication: UPPER RESPIRATORY TRACT CONGESTION
     Dosage: PRESCRIBED 80-4.5,  TWO PUFFS BID,  BUT THE PATIENT ONLY TAKES IT EVERY MORNING
     Route: 055
     Dates: start: 20141118, end: 20141210

REACTIONS (3)
  - Nervousness [Unknown]
  - Intentional product misuse [Not Recovered/Not Resolved]
  - Device misuse [Unknown]

NARRATIVE: CASE EVENT DATE: 20141118
